FAERS Safety Report 9049752 (Version 1)
Quarter: 2013Q1

REPORT INFORMATION
  Report Type: Spontaneous
  Country: TH (occurrence: TH)
  Receive Date: 20130205
  Receipt Date: 20130205
  Transmission Date: 20140127
  Serious: Yes (Death)
  Sender: FDA-Public Use
  Company Number: TH-ASTRAZENECA-2013SE07669

PATIENT
  Age: 73 Year
  Sex: Female

DRUGS (13)
  1. MEROPENEM [Suspect]
     Indication: SEPSIS
     Dosage: 500 MG EVERY 48 HOURS (AT EVENING AFTER HAEMODIALYSIS)
     Route: 042
  2. OMEPRAZOLE [Suspect]
     Indication: SEPSIS
     Route: 042
  3. VANCOMYCIN [Suspect]
     Indication: SEPSIS
     Dosage: 1 GRAM EVERY AFTER HAEMODIALYSIS
  4. DOPAMINE [Concomitant]
     Indication: BLOOD PRESSURE INCREASED
  5. CEFTRIAXONE [Concomitant]
     Indication: SEPSIS
     Route: 042
  6. SODIUM BICARBONATE [Concomitant]
     Route: 048
  7. FERROUS SULFATE [Concomitant]
  8. FOLIC ACID [Concomitant]
  9. CALCIUM [Concomitant]
  10. NOREPINEPHRINE [Concomitant]
     Indication: BLOOD PRESSURE INCREASED
  11. DEXAMETHASONE [Concomitant]
     Indication: SEPSIS
     Route: 042
  12. ACETYLCYSTEINE [Concomitant]
     Indication: SEPSIS
     Dosage: 13,800 MG IV IN 24 HOURS
     Route: 042
  13. CIPROFLOXACIN [Concomitant]
     Indication: SEPSIS

REACTIONS (1)
  - Toxic epidermal necrolysis [Fatal]
